FAERS Safety Report 5363290-7 (Version None)
Quarter: 2007Q2

REPORT INFORMATION
  Report Type: 
  Country: None (occurrence: None)
  Receive Date: 20070620
  Receipt Date: 20070611
  Transmission Date: 20071010
  Serious: Yes (Hospitalization)
  Sender: FDA-Public Use
  Company Number: US-JNJFOC-20070602657

PATIENT
  Sex: Female
  Weight: 58.4 kg

DRUGS (16)
  1. DOXIL [Suspect]
     Route: 042
  2. DOXIL [Suspect]
     Indication: DIFFUSE LARGE B-CELL LYMPHOMA
     Route: 042
  3. CYCLOPHOSPHAMIDE [Suspect]
     Indication: DRUG USE FOR UNKNOWN INDICATION
     Route: 042
  4. RITUXIMAB [Suspect]
     Indication: DRUG USE FOR UNKNOWN INDICATION
     Route: 042
  5. VINCRISTINE SULFATE [Suspect]
     Indication: DRUG USE FOR UNKNOWN INDICATION
     Route: 042
  6. NEULASTA [Suspect]
     Indication: DRUG USE FOR UNKNOWN INDICATION
     Route: 058
  7. AVENDIA [Concomitant]
     Route: 065
  8. COREG [Concomitant]
     Route: 065
  9. ANALAPRIL [Concomitant]
     Route: 065
  10. GLIPIZIDE [Concomitant]
     Route: 065
  11. GLUCOPHAGE [Concomitant]
     Route: 065
  12. HYDROMORPHONE HCL [Concomitant]
     Route: 065
  13. NEXIUM [Concomitant]
     Route: 065
  14. TACERONE [Concomitant]
     Route: 065
  15. TIMOLOL MALEATE [Concomitant]
     Route: 065
  16. PROCRIT [Concomitant]
     Route: 065

REACTIONS (2)
  - ATRIOVENTRICULAR BLOCK COMPLETE [None]
  - SYNCOPE [None]
